FAERS Safety Report 5037071-8 (Version None)
Quarter: 2006Q2

REPORT INFORMATION
  Report Type: 
  Country: None (occurrence: None)
  Receive Date: 20060601
  Receipt Date: 20060212
  Transmission Date: 20061013
  Serious: No
  Sender: FDA-Public Use
  Company Number: 2006PV008551

PATIENT
  Age: 57 Year
  Sex: Male

DRUGS (14)
  1. BYETTA [Suspect]
     Indication: DIABETES MELLITUS NON-INSULIN-DEPENDENT
     Dosage: 5 MCG;SC
     Route: 058
     Dates: start: 20060201
  2. METFORMIN [Concomitant]
  3. NEURONTIN [Concomitant]
  4. LISINOPRIL [Concomitant]
  5. ACOTS /USA/ [Concomitant]
  6. HYDROCHLOROTHIAZIDE [Concomitant]
  7. CLONIDINE [Concomitant]
  8. PIROXICAM [Concomitant]
  9. WELLBUTRIN [Concomitant]
  10. HUMULIN R [Concomitant]
  11. OXYCODONE HCL [Concomitant]
  12. SKELAXIN [Concomitant]
  13. TOPROL-XL [Concomitant]
  14. DIOVAN [Concomitant]

REACTIONS (2)
  - BACK PAIN [None]
  - CONDITION AGGRAVATED [None]
